FAERS Safety Report 18188769 (Version 1)
Quarter: 2020Q3

REPORT INFORMATION
  Report Type: Other
  Country: CN (occurrence: CN)
  Receive Date: 20200825
  Receipt Date: 20200825
  Transmission Date: 20201103
  Serious: Yes (Other)
  Sender: FDA-Public Use
  Company Number: CN-ROCHE-2663270

PATIENT

DRUGS (4)
  1. BEVACIZUMAB. [Suspect]
     Active Substance: BEVACIZUMAB
     Indication: COLON CANCER
     Dosage: ON DAY 1
     Route: 041
  2. CAPECITABINE. [Suspect]
     Active Substance: CAPECITABINE
     Indication: COLON CANCER
     Dosage: ON DAYS 1 TO 14, EVERY 3 WEEKS
     Route: 041
  3. DEXAMETHASONE. [Concomitant]
     Active Substance: DEXAMETHASONE
     Indication: ALLERGY PROPHYLAXIS
  4. OXALIPLATIN. [Suspect]
     Active Substance: OXALIPLATIN
     Indication: COLON CANCER
     Dosage: FOR 2 HOUR ON DAY 1
     Route: 041

REACTIONS (6)
  - Gastrointestinal disorder [Unknown]
  - White blood cell count decreased [Unknown]
  - Renal impairment [Unknown]
  - Neurotoxicity [Unknown]
  - Platelet count decreased [Unknown]
  - Haemoglobin decreased [Unknown]
